FAERS Safety Report 4335729-7 (Version None)
Quarter: 2004Q1

REPORT INFORMATION
  Report Type: 
  Country: None (occurrence: None)
  Receive Date: 20040329
  Receipt Date: 20031120
  Transmission Date: 20041129
  Serious: No
  Sender: FDA-Public Use
  Company Number: USA031153095

PATIENT
  Sex: Female

DRUGS (7)
  1. STRATTERA [Suspect]
     Indication: ANXIETY
     Dosage: 60 MG/DAY
     Dates: start: 20030701
  2. STRATTERA [Suspect]
     Indication: ATTENTION DEFICIT/HYPERACTIVITY DISORDER
     Dosage: 60 MG/DAY
     Dates: start: 20030701
  3. STRATTERA [Suspect]
     Indication: DEPRESSION
     Dosage: 60 MG/DAY
     Dates: start: 20030701
  4. CONCERTA [Concomitant]
  5. RITALIN [Concomitant]
  6. PROGESTERONE [Concomitant]
  7. ESTROGEN NOS [Concomitant]

REACTIONS (3)
  - DRY MOUTH [None]
  - SINUS CONGESTION [None]
  - SINUSITIS [None]
